FAERS Safety Report 7454864-8 (Version None)
Quarter: 2011Q1

REPORT INFORMATION
  Report Type: 
  Country: None (occurrence: None)
  Receive Date: 20110302
  Receipt Date: 20110110
  Transmission Date: 20110831
  Serious: No
  Sender: FDA-Public Use
  Company Number: 025193

PATIENT
  Sex: Female

DRUGS (2)
  1. CIMZIA [Suspect]
     Indication: CROHN'S DISEASE
     Dosage: (SUBCUTANEOUS), (SUBCUTANEOUS)
     Route: 058
     Dates: start: 20100101
  2. CIMZIA [Suspect]
     Indication: CROHN'S DISEASE
     Dosage: (SUBCUTANEOUS), (SUBCUTANEOUS)
     Route: 058
     Dates: start: 20100401, end: 20100101

REACTIONS (4)
  - NASOPHARYNGITIS [None]
  - FATIGUE [None]
  - PYREXIA [None]
  - INFLUENZA LIKE ILLNESS [None]
